FAERS Safety Report 10189515 (Version 1)
Quarter: 2014Q2

REPORT INFORMATION
  Report Type: Spontaneous
  Country: JP (occurrence: JP)
  Receive Date: 20140522
  Receipt Date: 20140522
  Transmission Date: 20141212
  Serious: Yes (Hospitalization)
  Sender: FDA-Public Use
  Company Number: JP-PFIZER INC-2014138248

PATIENT
  Age: 50 Year
  Sex: Male

DRUGS (4)
  1. CHAMPIX [Suspect]
     Dosage: UNK
     Route: 048
     Dates: start: 20140214, end: 2014
  2. CIMETIDINE [Concomitant]
     Dosage: UNK
  3. ASPARTATE POTASSIUM [Concomitant]
     Dosage: UNK
  4. ZYRTEC [Concomitant]
     Dosage: UNK

REACTIONS (1)
  - Leukoencephalopathy [Not Recovered/Not Resolved]
